FAERS Safety Report 19132171 (Version 1)
Quarter: 2021Q2

REPORT INFORMATION
  Report Type: Spontaneous
  Country: US (occurrence: US)
  Receive Date: 20210414
  Receipt Date: 20210414
  Transmission Date: 20210717
  Serious: No
  Sender: FDA-Public Use
  Company Number: US-DRREDDYS-USA/USA/21/0133754

PATIENT
  Age: 61 Year
  Sex: Female
  Weight: 67.5 kg

DRUGS (1)
  1. IBANDRONATE SODIUM TABLETS 150 MG [Suspect]
     Active Substance: IBANDRONATE SODIUM
     Indication: OSTEOPOROSIS
     Dosage: 1 TABLET ONCE A MONTH
     Route: 048
     Dates: start: 20210228

REACTIONS (4)
  - Tooth loss [Unknown]
  - Pain in jaw [Unknown]
  - Dry mouth [Unknown]
  - Gingival discomfort [Unknown]
